FAERS Safety Report 14401716 (Version 2)
Quarter: 2022Q3

REPORT INFORMATION
  Report Type: Spontaneous
  Country: US (occurrence: US)
  Receive Date: 20180117
  Receipt Date: 20220906
  Transmission Date: 20221026
  Serious: Yes (Other)
  Sender: FDA-Public Use
  Company Number: US-PURDUE-USA-2018-0142394

PATIENT
  Age: 50 Year
  Sex: Female

DRUGS (2)
  1. COLACE [Suspect]
     Active Substance: DOCUSATE SODIUM
     Indication: Constipation
     Dosage: 2 CAPSL, PRN
     Route: 048
  2. SENOKOT [Suspect]
     Active Substance: SENNOSIDES
     Indication: Product used for unknown indication
     Dosage: UNK
     Route: 048

REACTIONS (2)
  - Haematochezia [Not Recovered/Not Resolved]
  - Adverse drug reaction [Unknown]

NARRATIVE: CASE EVENT DATE: 20180113
